FAERS Safety Report 21441280 (Version 1)
Quarter: 2022Q4

REPORT INFORMATION
  Report Type: Spontaneous
  Country: US (occurrence: None)
  Receive Date: 20221010
  Receipt Date: 20221010
  Transmission Date: 20230113
  Serious: Yes (Other)
  Sender: FDA-Public Use
  Company Number: None

PATIENT
  Age: 67 Year
  Sex: Female
  Weight: 96.75 kg

DRUGS (1)
  1. MOUNJARO [Suspect]
     Active Substance: TIRZEPATIDE
     Indication: Diabetes mellitus
     Dosage: OTHER FREQUENCY : ONE INJECTION WEEK;?OTHER ROUTE : INTO THE SKIN;?
     Route: 050
     Dates: start: 20221009, end: 20221009

REACTIONS (8)
  - Lip swelling [None]
  - Swelling face [None]
  - Swollen tongue [None]
  - Peripheral swelling [None]
  - Peripheral swelling [None]
  - Obstructive airways disorder [None]
  - Rash erythematous [None]
  - Urticaria [None]

NARRATIVE: CASE EVENT DATE: 20221009
